FAERS Safety Report 11543155 (Version 2)
Quarter: 2015Q4

REPORT INFORMATION
  Report Type: Spontaneous
  Country: FR (occurrence: FR)
  Receive Date: 20150923
  Receipt Date: 20151007
  Transmission Date: 20160304
  Serious: Yes (Life-Threatening, Hospitalization, Other)
  Sender: FDA-Public Use
  Company Number: FR-BAXTER-2015BAX050837

PATIENT
  Age: 65 Year
  Sex: Male

DRUGS (12)
  1. EZETROL [Concomitant]
     Active Substance: EZETIMIBE
     Indication: DRUG THERAPY
     Route: 065
  2. PREVISCAN [Suspect]
     Active Substance: FLUINDIONE
     Indication: ATRIAL FIBRILLATION
     Route: 048
  3. ADRIBLASTINE [Suspect]
     Active Substance: DOXORUBICIN
     Indication: LYMPHOPLASMACYTOID LYMPHOMA/IMMUNOCYTOMA
     Dosage: 4 COURSES
     Route: 042
     Dates: start: 201204, end: 201209
  4. DEPOCYTE [Suspect]
     Active Substance: CYTARABINE
     Indication: METASTASES TO MENINGES
     Dosage: 10 COURSES
     Route: 037
     Dates: start: 201408, end: 201501
  5. MABTHERA [Suspect]
     Active Substance: RITUXIMAB
     Indication: LYMPHOPLASMACYTOID LYMPHOMA/IMMUNOCYTOMA
     Dosage: 5 COURSES WITH BENDAMUSTINE AND 1 COURSE ALONE
     Route: 042
     Dates: start: 201204, end: 201209
  6. ENDOXAN 1000 MG, POUDRE POUR SOLUTION INJECTABLE [Suspect]
     Active Substance: CYCLOPHOSPHAMIDE
     Indication: LYMPHOPLASMACYTOID LYMPHOMA/IMMUNOCYTOMA
     Dosage: 7 COURSES
     Route: 042
     Dates: start: 201204, end: 201209
  7. MABTHERA [Suspect]
     Active Substance: RITUXIMAB
     Indication: METASTASES TO MENINGES
     Dosage: 5 COURSES WITH BENDAMUSTINE AND 1 COURSE ALONE
     Route: 037
     Dates: start: 201408, end: 201501
  8. PREDNISONE. [Suspect]
     Active Substance: PREDNISONE
     Indication: LYMPHOPLASMACYTOID LYMPHOMA/IMMUNOCYTOMA
     Dosage: 4 COURSES
     Route: 042
     Dates: start: 201204, end: 201209
  9. INEXIUM [Suspect]
     Active Substance: ESOMEPRAZOLE
     Indication: GASTROOESOPHAGEAL REFLUX DISEASE
     Route: 048
  10. BENDAMUSTINE [Suspect]
     Active Substance: BENDAMUSTINE
     Indication: METASTASES TO MENINGES
     Dosage: 5 COURSES
     Route: 037
     Dates: start: 201408, end: 201501
  11. VINCRISTINE [Suspect]
     Active Substance: VINCRISTINE
     Indication: LYMPHOPLASMACYTOID LYMPHOMA/IMMUNOCYTOMA
     Dosage: 4 COURSES
     Route: 042
     Dates: start: 201204, end: 201209
  12. FLUDARABINE [Suspect]
     Active Substance: FLUDARABINE PHOSPHATE
     Indication: LYMPHOPLASMACYTOID LYMPHOMA/IMMUNOCYTOMA
     Dosage: 3 COURSES
     Route: 042
     Dates: end: 201209

REACTIONS (17)
  - Retroperitoneal haematoma [Unknown]
  - Acute kidney injury [Unknown]
  - Hypovolaemia [Unknown]
  - Overdose [Unknown]
  - Metastases to meninges [Unknown]
  - Retroperitoneal fibrosis [Not Recovered/Not Resolved]
  - Condition aggravated [Unknown]
  - Abdominal pain [Unknown]
  - Pyelocaliectasis [Unknown]
  - Renal tubular necrosis [Unknown]
  - Pyrexia [Unknown]
  - Pleural infection [Unknown]
  - Balance disorder [Unknown]
  - Cytopenia [Unknown]
  - Anaemia [Unknown]
  - Post procedural haematuria [Unknown]
  - Vomiting [Unknown]

NARRATIVE: CASE EVENT DATE: 201301
